FAERS Safety Report 5991090-3 (Version None)
Quarter: 2008Q4

REPORT INFORMATION
  Report Type: 
  Country: None (occurrence: None)
  Receive Date: 20081202
  Receipt Date: 20080411
  Transmission Date: 20090506
  Serious: Yes (Disabling)
  Sender: FDA-Public Use
  Company Number: WAES 0704USA05886

PATIENT
  Age: 46 Year
  Sex: Female

DRUGS (5)
  1. FOSAMAX [Suspect]
     Indication: OSTEOPENIA
     Dosage: 70 MG/WKY/PO
     Route: 048
     Dates: start: 20040101, end: 20060601
  2. FOSAMAX [Suspect]
     Indication: OSTEOPENIA
     Dosage: PO
     Route: 048
     Dates: start: 20040201, end: 20060501
  3. DITROPAN [Concomitant]
  4. NOROXIN [Concomitant]
  5. PAXIL [Concomitant]

REACTIONS (33)
  - ADVERSE EVENT [None]
  - ANXIETY [None]
  - ARTHRALGIA [None]
  - ARTHROPATHY [None]
  - BACK PAIN [None]
  - BASAL CELL CARCINOMA [None]
  - BREAST DISORDER [None]
  - DENTAL CARIES [None]
  - DEPRESSION [None]
  - DRUG HYPERSENSITIVITY [None]
  - DYSFUNCTIONAL UTERINE BLEEDING [None]
  - ESCHERICHIA URINARY TRACT INFECTION [None]
  - FALL [None]
  - FEMUR FRACTURE [None]
  - GINGIVAL DISORDER [None]
  - HOT FLUSH [None]
  - HYPERLIPIDAEMIA [None]
  - INSOMNIA [None]
  - IRRITABLE BOWEL SYNDROME [None]
  - LIBIDO DECREASED [None]
  - MUSCULOSKELETAL DISCOMFORT [None]
  - OEDEMA [None]
  - OSTEONECROSIS [None]
  - OSTEOPOROSIS [None]
  - PAIN IN EXTREMITY [None]
  - PAIN IN JAW [None]
  - RASH ERYTHEMATOUS [None]
  - SKIN DISORDER [None]
  - STAPHYLOCOCCAL INFECTION [None]
  - TEMPOROMANDIBULAR JOINT SYNDROME [None]
  - TONGUE GEOGRAPHIC [None]
  - TOOTH FRACTURE [None]
  - TOOTH LOSS [None]
